FAERS Safety Report 5903379-4 (Version None)
Quarter: 2008Q3

REPORT INFORMATION
  Report Type: 
  Country: None (occurrence: None)
  Receive Date: 20080926
  Receipt Date: 20080511
  Transmission Date: 20090109
  Serious: Yes (Other)
  Sender: FDA-Public Use
  Company Number: 2008PL000135

PATIENT
  Age: 61 Year

DRUGS (4)
  1. AZATHIOPRINE [Suspect]
     Indication: DERMATITIS ATOPIC
     Dosage: 150 MG; QD; PO
     Route: 048
  2. AZATHIOPRINE [Suspect]
     Indication: PSORIASIS
     Dosage: 150 MG; QD; PO
     Route: 048
  3. INFLIXIMAB (INFLIXIMAB) [Suspect]
     Indication: DERMATITIS ATOPIC
     Dosage: 400 MG;
  4. INFLIXIMAB (INFLIXIMAB) [Suspect]
     Indication: PSORIASIS
     Dosage: 400 MG;

REACTIONS (1)
  - ALVEOLITIS [None]
